FAERS Safety Report 4544142-9 (Version None)
Quarter: 2005Q1

REPORT INFORMATION
  Report Type: 
  Country: None (occurrence: None)
  Receive Date: 20050104
  Receipt Date: 20041221
  Transmission Date: 20050727
  Serious: Yes (Other)
  Sender: FDA-Public Use
  Company Number: US-GLAXOSMITHKLINE-A0538243A

PATIENT
  Age: 59 Year
  Sex: Female

DRUGS (11)
  1. LAMICTAL [Suspect]
     Indication: DRUG USE FOR UNKNOWN INDICATION
     Route: 048
     Dates: start: 20040701
  2. WELLBUTRIN XL [Concomitant]
  3. LEXAPRO [Concomitant]
  4. VALIUM [Concomitant]
  5. TRILAFON [Concomitant]
  6. SYNTHROID [Concomitant]
  7. LOPRESSOR [Concomitant]
  8. ATROPINE [Concomitant]
  9. XALATAN [Concomitant]
  10. HUMALOG [Concomitant]
  11. LANTUS [Concomitant]

REACTIONS (11)
  - BURNING SENSATION [None]
  - COORDINATION ABNORMAL [None]
  - DIPLOPIA [None]
  - DYSARTHRIA [None]
  - FALL [None]
  - HALLUCINATION [None]
  - HYPOAESTHESIA [None]
  - MOTOR DYSFUNCTION [None]
  - PAIN IN EXTREMITY [None]
  - TREMOR [None]
  - VISUAL DISTURBANCE [None]
